FAERS Safety Report 7797551-9 (Version None)
Quarter: 2011Q3

REPORT INFORMATION
  Report Type: 
  Country: None (occurrence: None)
  Receive Date: 20110926
  Receipt Date: 20110912
  Transmission Date: 20111222
  Serious: No
  Sender: FDA-Public Use
  Company Number: CA-145250

PATIENT
  Sex: Female
  Weight: 59 kg

DRUGS (9)
  1. WINRHO [Suspect]
     Indication: IDIOPATHIC THROMBOCYTOPENIC PURPURA
     Dosage: SEE IMAGE
     Route: 042
     Dates: start: 20110906, end: 20110906
  2. WINRHO [Suspect]
     Indication: IDIOPATHIC THROMBOCYTOPENIC PURPURA
     Dosage: SEE IMAGE
     Route: 042
     Dates: start: 20110831, end: 20110831
  3. WINRHO [Suspect]
     Indication: IDIOPATHIC THROMBOCYTOPENIC PURPURA
     Dosage: SEE IMAGE
     Route: 042
     Dates: start: 20110808, end: 20110808
  4. VOLTAREN [Concomitant]
  5. DOMPERIDONE [Concomitant]
  6. PANTOPRAZOLE [Concomitant]
  7. NITROLINGUAL [Concomitant]
  8. CRESTOR [Concomitant]
  9. RAMIPRIL [Concomitant]

REACTIONS (8)
  - DRUG PRESCRIBING ERROR [None]
  - ABDOMINAL PAIN UPPER [None]
  - FEELING HOT [None]
  - HEART RATE INCREASED [None]
  - DYSPNOEA [None]
  - BLOOD PRESSURE INCREASED [None]
  - WRONG DRUG ADMINISTERED [None]
  - HAEMATURIA [None]
